FAERS Safety Report 7282448-3 (Version None)
Quarter: 2011Q1

REPORT INFORMATION
  Report Type: 
  Country: None (occurrence: None)
  Receive Date: 20110125
  Receipt Date: 20110110
  Transmission Date: 20110831
  Serious: Yes (Death)
  Sender: FDA-Public Use
  Company Number: 025507

PATIENT
  Age: 41 Year
  Sex: Female

DRUGS (5)
  1. OXYCODONE [Suspect]
  2. CARISOPRODOL [Suspect]
  3. ALPRAZOLAM [Suspect]
  4. METFORMIN [Suspect]
  5. METHYLENEDIOXYMETHAMPHETAMINE [Suspect]

REACTIONS (2)
  - CARDIAC ARREST [None]
  - RESPIRATORY ARREST [None]
